FAERS Safety Report 8185582-9 (Version None)
Quarter: 2012Q1

REPORT INFORMATION
  Report Type: 
  Country: None (occurrence: None)
  Receive Date: 20120305
  Receipt Date: 20120302
  Transmission Date: 20120608
  Serious: No
  Sender: FDA-Public Use
  Company Number: US-PFIZER INC-2012057174

PATIENT
  Sex: Male

DRUGS (3)
  1. ALLOPURINOL [Suspect]
     Indication: NEPHROLITHIASIS
     Dosage: UNK
     Dates: end: 20120201
  2. CELEBREX [Suspect]
     Dosage: 200 MG, 2X/DAY
     Dates: start: 20120201
  3. CELEBREX [Suspect]
     Dosage: 200 MG, DAILY

REACTIONS (1)
  - LOCAL SWELLING [None]
